FAERS Safety Report 4395456-7 (Version None)
Quarter: 2004Q3

REPORT INFORMATION
  Report Type: 
  Country: None (occurrence: None)
  Receive Date: 20040709
  Receipt Date: 20040626
  Transmission Date: 20050211
  Serious: Yes (Hospitalization, Other)
  Sender: FDA-Public Use
  Company Number: 2004029925

PATIENT
  Age: 31 Year
  Sex: Female
  Weight: 49.8957 kg

DRUGS (6)
  1. NEURONTIN [Suspect]
     Indication: ANXIETY
     Dosage: 1400 MG (EVERY DAY), ORAL
     Route: 048
     Dates: end: 20040505
  2. NEURONTIN [Suspect]
     Indication: MOOD SWINGS
     Dosage: 1400 MG (EVERY DAY), ORAL
     Route: 048
     Dates: end: 20040505
  3. GABAPENTIN [Suspect]
     Indication: MOOD SWINGS
     Dates: end: 20040502
  4. CARISOPRODOL [Suspect]
     Indication: ILL-DEFINED DISORDER
  5. SERTRALINE HCL [Concomitant]
  6. OBETROLN (AMFETAMINE ASPARTATE, AMFETAMINE SULFATE, DEXAMFETAMINE SACC [Concomitant]

REACTIONS (13)
  - AGGRESSION [None]
  - ALCOHOLISM [None]
  - ANXIETY [None]
  - CONVULSION [None]
  - DEPERSONALISATION [None]
  - HEAD INJURY [None]
  - HYPERVIGILANCE [None]
  - LOSS OF CONSCIOUSNESS [None]
  - OVERDOSE [None]
  - RASH [None]
  - SEXUAL ASSAULT VICTIM [None]
  - SKIN LACERATION [None]
  - TREATMENT NONCOMPLIANCE [None]
